FAERS Safety Report 21009773 (Version 1)
Quarter: 2022Q2

REPORT INFORMATION
  Report Type: Spontaneous
  Country: US (occurrence: US)
  Receive Date: 20220627
  Receipt Date: 20220627
  Transmission Date: 20220720
  Serious: No
  Sender: FDA-Public Use
  Company Number: US-DENDREON PHARMACEUTICAL LLC-2021DEN000218

PATIENT

DRUGS (4)
  1. PROVENGE [Suspect]
     Active Substance: SIPULEUCEL-T
     Indication: Prostate cancer metastatic
     Dosage: DOSE 1
     Route: 041
     Dates: start: 20210726, end: 20210726
  2. PROVENGE [Suspect]
     Active Substance: SIPULEUCEL-T
     Dosage: DOSE 2
     Route: 041
     Dates: start: 20210809, end: 20210809
  3. TYLENOL 8HR [Concomitant]
     Active Substance: ACETAMINOPHEN
     Indication: Prophylaxis
     Dosage: 650 MILLIGRAM, SINGLE
     Route: 048
     Dates: start: 20210809
  4. BENADRYL OTC [Concomitant]
     Indication: Prophylaxis
     Dosage: 50 MILLIGRAM, SINGLE
     Route: 048
     Dates: start: 20210809, end: 20210809

REACTIONS (1)
  - Infusion related reaction [Recovered/Resolved]

NARRATIVE: CASE EVENT DATE: 20210809
